FAERS Safety Report 25512788 (Version 1)
Quarter: 2025Q3

REPORT INFORMATION
  Report Type: Spontaneous
  Country: TW (occurrence: TW)
  Receive Date: 20250703
  Receipt Date: 20250703
  Transmission Date: 20251020
  Serious: Yes (Other)
  Sender: B. BRAUN MEDICAL INC.
  Company Number: TW-B. Braun Medical Inc.-TW-BBM-202502485

PATIENT
  Age: 30 Year
  Sex: Female
  Weight: 65.3 kg

DRUGS (1)
  1. BUPIVACAINE [Suspect]
     Active Substance: BUPIVACAINE
     Indication: Spinal anaesthesia

REACTIONS (2)
  - Cauda equina syndrome [Not Recovered/Not Resolved]
  - Neurotoxicity [Not Recovered/Not Resolved]
